FAERS Safety Report 13073556 (Version 3)
Quarter: 2017Q1

REPORT INFORMATION
  Report Type: Report from Study
  Country: BR (occurrence: BR)
  Receive Date: 20161229
  Receipt Date: 20170119
  Transmission Date: 20170428
  Serious: Yes (Other)
  Sender: FDA-Public Use
  Company Number: BR-SA-2016SA234807

PATIENT
  Sex: Female

DRUGS (3)
  1. NOVORAPID [Concomitant]
     Active Substance: INSULIN ASPART
  2. CLIKSTAR [Suspect]
     Active Substance: CLIKSTAR
  3. LANTUS [Suspect]
     Active Substance: INSULIN GLARGINE
     Indication: TYPE 1 DIABETES MELLITUS
     Route: 065
     Dates: start: 2013

REACTIONS (11)
  - Injection site pain [Unknown]
  - Ketoacidosis [Unknown]
  - Device issue [Unknown]
  - Blood glucose increased [Unknown]
  - Drug dose omission [Unknown]
  - Anxiety [Unknown]
  - Pain in extremity [Unknown]
  - Glycosylated haemoglobin increased [Not Recovered/Not Resolved]
  - Hyperglycaemia [Unknown]
  - Feeling abnormal [Unknown]
  - Product use issue [Unknown]
